FAERS Safety Report 12346554 (Version 1)
Quarter: 2016Q2

REPORT INFORMATION
  Report Type: Spontaneous
  Country: SE (occurrence: SE)
  Receive Date: 20160509
  Receipt Date: 20160509
  Transmission Date: 20160815
  Serious: Yes (Other)
  Sender: FDA-Public Use
  Company Number: SE-BAXTER-2016BAX022712

PATIENT
  Sex: Female

DRUGS (2)
  1. SENDOXAN 1000 MG PULVER TILL INJEKTIONSV?TSKA, L?SNING [Suspect]
     Active Substance: CYCLOPHOSPHAMIDE
     Indication: VASCULITIS
     Route: 042
  2. CORTISONE [Suspect]
     Active Substance: CORTISONE\HYDROCORTISONE
     Indication: VASCULITIS
     Route: 065

REACTIONS (5)
  - Reading disorder [Unknown]
  - Cerebral disorder [Unknown]
  - Hypoacusis [Unknown]
  - Confusional state [Unknown]
  - Abasia [Unknown]
